FAERS Safety Report 6858492-4 (Version None)
Quarter: 2010Q3

REPORT INFORMATION
  Report Type: 
  Country: None (occurrence: None)
  Receive Date: 20100719
  Receipt Date: 20080212
  Transmission Date: 20110219
  Serious: No
  Sender: FDA-Public Use
  Company Number: US-PFIZER INC-2008013746

PATIENT
  Sex: Male
  Weight: 108.9 kg

DRUGS (5)
  1. CHANTIX [Suspect]
     Dates: start: 20080118
  2. PERCOCET [Concomitant]
  3. KLONOPIN [Concomitant]
  4. LYRICA [Concomitant]
  5. ALL OTHER THERAPEUTIC PRODUCTS [Concomitant]

REACTIONS (1)
  - INSOMNIA [None]
